FAERS Safety Report 11021814 (Version 4)
Quarter: 2015Q3

REPORT INFORMATION
  Report Type: Spontaneous
  Country: US (occurrence: US)
  Receive Date: 20150413
  Receipt Date: 20150706
  Transmission Date: 20151125
  Serious: Yes (Hospitalization, Other)
  Sender: FDA-Public Use
  Company Number: US-PFIZER INC-2015124463

PATIENT
  Age: 58 Year
  Sex: Female

DRUGS (2)
  1. XELJANZ [Suspect]
     Active Substance: TOFACITINIB CITRATE
     Dosage: 5 MG, 2X/DAY
     Route: 048
     Dates: end: 20150630
  2. XELJANZ [Suspect]
     Active Substance: TOFACITINIB CITRATE
     Dosage: 5MG (1 TABLET) TWICE DAILY
     Route: 048
     Dates: start: 20150201

REACTIONS (11)
  - Contusion [Unknown]
  - Infection [Not Recovered/Not Resolved]
  - Calculus urethral [Unknown]
  - Oedema peripheral [Unknown]
  - Gait disturbance [Unknown]
  - Fall [Unknown]
  - Kidney infection [Unknown]
  - Muscle spasms [Unknown]
  - Hypertension [Unknown]
  - Upper limb fracture [Unknown]
  - Neuralgia [Unknown]

NARRATIVE: CASE EVENT DATE: 201503
